FAERS Safety Report 20730906 (Version 1)
Quarter: 2022Q2

REPORT INFORMATION
  Report Type: Report from Study
  Country: US (occurrence: None)
  Receive Date: 20220420
  Receipt Date: 20220420
  Transmission Date: 20220721
  Serious: Yes (Other)
  Sender: FDA-Public Use
  Company Number: 2022A152114

PATIENT
  Age: 71 Year

DRUGS (1)
  1. FASLODEX [Suspect]
     Active Substance: FULVESTRANT
     Route: 030
     Dates: start: 202001

REACTIONS (2)
  - Hemiplegia [Unknown]
  - Sciatic nerve injury [Unknown]

NARRATIVE: CASE EVENT DATE: 20200101
